FAERS Safety Report 24400687 (Version 1)
Quarter: 2024Q4

REPORT INFORMATION
  Report Type: Spontaneous
  Country: US (occurrence: US)
  Receive Date: 20241006
  Receipt Date: 20241006
  Transmission Date: 20250115
  Serious: Yes (Death, Hospitalization)
  Sender: DR REDDYS
  Company Number: US-DRL-USA-LIT/USA/24/0014511

PATIENT
  Age: 47 Year
  Sex: Male

DRUGS (2)
  1. VASOPRESSIN [Suspect]
     Active Substance: VASOPRESSIN
     Indication: Shock
     Route: 042
  2. NOREPINEPHRINE [Suspect]
     Active Substance: NOREPINEPHRINE\NOREPINEPHRINE BITARTRATE
     Indication: Shock
     Route: 042

REACTIONS (2)
  - Condition aggravated [Fatal]
  - Drug ineffective [Fatal]
